FAERS Safety Report 9411442 (Version 1)
Quarter: 2013Q3

REPORT INFORMATION
  Report Type: Spontaneous
  Country: US (occurrence: US)
  Receive Date: 20130722
  Receipt Date: 20130722
  Transmission Date: 20140515
  Serious: Yes (Other)
  Sender: FDA-Public Use
  Company Number: US-ROCHE-1250637

PATIENT
  Sex: Male

DRUGS (2)
  1. XELODA [Suspect]
     Indication: RECTAL ADENOCARCINOMA
     Route: 048
  2. XELODA [Suspect]
     Route: 048

REACTIONS (1)
  - Electrocardiogram abnormal [Unknown]
